FAERS Safety Report 21344253 (Version 1)
Quarter: 2022Q3

REPORT INFORMATION
  Report Type: Spontaneous
  Country: US (occurrence: US)
  Receive Date: 20220916
  Receipt Date: 20220916
  Transmission Date: 20221027
  Serious: No
  Sender: FDA-Public Use
  Company Number: US-ELI_LILLY_AND_COMPANY-US202209007229

PATIENT
  Sex: Female

DRUGS (1)
  1. BAQSIMI [Suspect]
     Active Substance: GLUCAGON
     Indication: Product used for unknown indication
     Dosage: 3 MG, UNKNOWN
     Route: 065

REACTIONS (3)
  - Rhinalgia [Unknown]
  - Hypersensitivity [Unknown]
  - Headache [Unknown]
